FAERS Safety Report 7906125-8 (Version None)
Quarter: 2011Q4

REPORT INFORMATION
  Report Type: 
  Country: None (occurrence: None)
  Receive Date: 20111110
  Receipt Date: 20111103
  Transmission Date: 20120403
  Serious: Yes (Hospitalization, Other)
  Sender: FDA-Public Use
  Company Number: US-AMGEN-USASP2011031612

PATIENT
  Age: 61 Year
  Sex: Male
  Weight: 124.8 kg

DRUGS (24)
  1. ALBUTEROL [Concomitant]
     Dosage: UNK UNK, PRN
     Route: 055
  2. PRILOSEC [Concomitant]
     Dosage: 20 MG, QD
  3. LORATADINE [Concomitant]
     Dosage: 10 MG, QD
  4. BLOOD CELLS, PACKED HUMAN [Concomitant]
  5. IMMUNE GLOBULIN NOS [Concomitant]
     Route: 042
  6. ATROVENT [Concomitant]
  7. SPIRIVA [Concomitant]
     Dosage: 18 MUG, QD
     Route: 055
  8. CORTICOSTEROIDS [Concomitant]
  9. CALCIUM+VIT D                      /00944201/ [Concomitant]
     Dosage: B
  10. ALBUTEROL SULFATE AND IPRATROPIUM BROMIDE [Concomitant]
     Dosage: UNK UNK, Q6H`
  11. LORAZEPAM [Concomitant]
  12. PROCHLORPERAZINE [Concomitant]
     Dosage: 10 MG, PRN
  13. NEUPOGEN [Suspect]
     Indication: PRODUCT USED FOR UNKNOWN INDICATION
     Dosage: 480 MG, UNK
     Dates: start: 20110103
  14. PAROXETINE HCL [Concomitant]
     Dosage: 20 MG, QD
  15. ADVAIR DISKUS 100/50 [Concomitant]
     Dosage: UNK UNK, BID
     Route: 055
  16. TEMAZEPAM [Concomitant]
     Dosage: 50 MG, PRN
  17. FERROUS SULFATE TAB [Concomitant]
     Dosage: 325 MG, QD
  18. NPLATE [Suspect]
     Dates: start: 20110201
  19. GABAPENTIN [Concomitant]
     Dosage: 900 MG, QD
  20. LISINOPRIL [Concomitant]
     Dosage: 5 MG, QD
  21. NPLATE [Suspect]
     Indication: IDIOPATHIC THROMBOCYTOPENIC PURPURA
     Dosage: 9.5 MUG/KG, UNK
     Dates: start: 20110215, end: 20110420
  22. ZANTAC [Concomitant]
     Dosage: 300 MG, QD
  23. PERCOCET [Concomitant]
     Dosage: UNK UNK, PRN
  24. LASIX [Concomitant]
     Dosage: 20 MG, QD
     Route: 048

REACTIONS (10)
  - LUNG DISORDER [None]
  - BRONCHITIS [None]
  - ANAEMIA [None]
  - LUNG INFILTRATION [None]
  - CHRONIC OBSTRUCTIVE PULMONARY DISEASE [None]
  - PNEUMONIA [None]
  - RESPIRATORY SYNCYTIAL VIRUS INFECTION [None]
  - DRUG INEFFECTIVE [None]
  - IRON OVERLOAD [None]
  - CARDIAC FAILURE [None]
